FAERS Safety Report 8518147-7 (Version None)
Quarter: 2012Q3

REPORT INFORMATION
  Report Type: 
  Country: None (occurrence: None)
  Receive Date: 20120718
  Receipt Date: 20111017
  Transmission Date: 20120928
  Serious: No
  Sender: FDA-Public Use
  Company Number: US-BRISTOL-MYERS SQUIBB COMPANY-16129850

PATIENT
  Age: 66 Year
  Sex: Female
  Weight: 113 kg

DRUGS (3)
  1. AFRIN [Suspect]
     Dosage: FOLLOW BY 2 SPRAY 3 DAYS
     Route: 045
  2. AMOXICILLIN [Concomitant]
     Route: 048
  3. COUMADIN [Suspect]
     Indication: DEEP VEIN THROMBOSIS
     Route: 048
     Dates: start: 19860101

REACTIONS (5)
  - HAEMORRHOIDAL HAEMORRHAGE [None]
  - SKIN HAEMORRHAGE [None]
  - MOUTH HAEMORRHAGE [None]
  - EPISTAXIS [None]
  - NASOPHARYNGITIS [None]
